FAERS Safety Report 9506972 (Version 2)
Quarter: 2013Q4

REPORT INFORMATION
  Report Type: Spontaneous
  Country: US (occurrence: US)
  Receive Date: 20130909
  Receipt Date: 20131112
  Transmission Date: 20140711
  Serious: Yes (Hospitalization)
  Sender: FDA-Public Use
  Company Number: US-BAYER-2013-102300

PATIENT
  Age: 25 Year
  Sex: Female
  Weight: 63.49 kg

DRUGS (1)
  1. MIRENA [Suspect]
     Indication: CONTRACEPTION
     Dosage: 20 MCG/24HR, CONT
     Route: 015
     Dates: start: 20070713, end: 20131015

REACTIONS (12)
  - Uterine perforation [None]
  - Intestinal perforation [None]
  - Injury [None]
  - Pain [None]
  - Emotional distress [None]
  - Abdominal pain lower [None]
  - Polymenorrhagia [None]
  - Procedural pain [None]
  - Medical device discomfort [None]
  - Device issue [None]
  - Device misuse [None]
  - Device difficult to use [None]
